FAERS Safety Report 22133365 (Version 1)
Quarter: 2023Q1

REPORT INFORMATION
  Report Type: Spontaneous
  Country: CN (occurrence: CN)
  Receive Date: 20230324
  Receipt Date: 20230324
  Transmission Date: 20230417
  Serious: Yes (Other)
  Sender: FDA-Public Use
  Company Number: None

PATIENT
  Age: 70 Year
  Sex: Female
  Weight: 70 kg

DRUGS (3)
  1. MANNITOL [Suspect]
     Active Substance: MANNITOL
     Indication: Reduction of increased intracranial pressure
     Dosage: 125 MILLILITERS (ML), 3 TIMES DAILY (EVERY 8 HOURS)  (DOSAGE FORM: INJECTION)
     Route: 041
     Dates: start: 20230314, end: 20230316
  2. POTASSIUM CHLORIDE [Suspect]
     Active Substance: POTASSIUM CHLORIDE
     Dosage: 1.5 GRAM PER DAY (G/D)
     Route: 041
     Dates: start: 20230314
  3. POTASSIUM CHLORIDE [Suspect]
     Active Substance: POTASSIUM CHLORIDE
     Dosage: 20 MILLIGRAMS (MG) ONCE DAILY
     Route: 048
     Dates: start: 20230314

REACTIONS (1)
  - Hypokalaemia [Unknown]

NARRATIVE: CASE EVENT DATE: 20230316
